FAERS Safety Report 6912455-9 (Version None)
Quarter: 2010Q3

REPORT INFORMATION
  Report Type: 
  Country: None (occurrence: None)
  Receive Date: 20100806
  Receipt Date: 20080509
  Transmission Date: 20110219
  Serious: No
  Sender: FDA-Public Use
  Company Number: US-PFIZER INC-2008040614

PATIENT
  Sex: Male
  Weight: 84.09 kg

DRUGS (2)
  1. DETROL [Suspect]
     Indication: URINARY INCONTINENCE
     Route: 048
     Dates: start: 20080401
  2. ANTIHYPERTENSIVES [Concomitant]
     Route: 048

REACTIONS (1)
  - DRY MOUTH [None]
